FAERS Safety Report 5388819-4 (Version None)
Quarter: 2007Q3

REPORT INFORMATION
  Report Type: 
  Country: None (occurrence: None)
  Receive Date: 20070712
  Receipt Date: 20070629
  Transmission Date: 20080115
  Serious: Yes (Death)
  Sender: FDA-Public Use
  Company Number: 2007S1005148

PATIENT
  Age: 52 Year
  Sex: Female
  Weight: 113.3993 kg

DRUGS (12)
  1. FENTANYL TRANSDERMAL SYSTEM [Suspect]
     Indication: NECK PAIN
     Dosage: 75 UG/HR; EVERY 3 DAYS; TRANSDERMAL
     Route: 062
     Dates: start: 20061006, end: 20061026
  2. LYRICA (CON.) [Concomitant]
  3. AMBIEN (CON.) [Concomitant]
  4. ELAVIL /00002202/ (CON.) [Concomitant]
  5. SOMA (CON.) [Concomitant]
  6. CYBALTA (CON.) [Concomitant]
  7. DIOVAN /01319601/ (CON.) [Concomitant]
  8. XANAX (CON.) [Concomitant]
  9. VICODIN (CON.) [Concomitant]
  10. NEXIUM /01479302/ (CON.) [Concomitant]
  11. PERICOLACE (CON.) [Concomitant]
  12. SURFAK (CON.) [Concomitant]

REACTIONS (8)
  - CARDIOMYOPATHY [None]
  - CONDITION AGGRAVATED [None]
  - DRUG TOXICITY [None]
  - HEPATIC STEATOSIS [None]
  - NECK PAIN [None]
  - OBESITY [None]
  - SNORING [None]
  - WRONG TECHNIQUE IN DRUG USAGE PROCESS [None]
